FAERS Safety Report 7351157-4 (Version None)
Quarter: 2011Q1

REPORT INFORMATION
  Report Type: 
  Country: None (occurrence: None)
  Receive Date: 20110304
  Receipt Date: 20110224
  Transmission Date: 20110831
  Serious: Yes (Hospitalization)
  Sender: FDA-Public Use
  Company Number: UTC-005356

PATIENT
  Age: 3 Year
  Sex: Female
  Weight: 13.6 kg

DRUGS (3)
  1. REVATIO [Concomitant]
  2. REMODULIN [Suspect]
     Indication: PULMONARY HYPERTENSION
     Dosage: 90.72 UG/KG (0.063 UG/KG, 1 IN 1 MIN),INTRAVENOUS
     Route: 042
  3. TRACLEER [Suspect]

REACTIONS (1)
  - PNEUMONIA [None]
